FAERS Safety Report 10533664 (Version 3)
Quarter: 2015Q2

REPORT INFORMATION
  Report Type: Spontaneous
  Country: US (occurrence: US)
  Receive Date: 20141022
  Receipt Date: 20150626
  Transmission Date: 20150821
  Serious: Yes (Other)
  Sender: FDA-Public Use
  Company Number: US-UCBSA-2014014652

PATIENT
  Age: 51 Year
  Sex: Male
  Weight: 69 kg

DRUGS (2)
  1. CIMZIA [Suspect]
     Active Substance: CERTOLIZUMAB PEGOL
     Dosage: 400 MG, EV 3 WEEKS
     Route: 058
     Dates: start: 20140805, end: 20140925
  2. CIMZIA [Suspect]
     Active Substance: CERTOLIZUMAB PEGOL
     Indication: CROHN^S DISEASE
     Dosage: 400 MG, EV 4 WEEKS
     Route: 058
     Dates: start: 20111229

REACTIONS (8)
  - Off label use [Unknown]
  - Blood pressure decreased [Unknown]
  - Loss of consciousness [Unknown]
  - Eye movement disorder [Unknown]
  - Unresponsive to stimuli [Unknown]
  - Drug ineffective [Unknown]
  - Flushing [Unknown]
  - Colonoscopy [Recovered/Resolved]

NARRATIVE: CASE EVENT DATE: 20140805
